FAERS Safety Report 10025490 (Version 1)
Quarter: 2014Q1

REPORT INFORMATION
  Report Type: Spontaneous
  Country: BR (occurrence: BR)
  Receive Date: 20140320
  Receipt Date: 20140320
  Transmission Date: 20141002
  Serious: Yes (Other)
  Sender: FDA-Public Use
  Company Number: BR-009507513-1403BRA005883

PATIENT
  Age: 37 Year
  Sex: Female
  Weight: 55 kg

DRUGS (3)
  1. NORFLOXACIN [Suspect]
     Dosage: UNK, UNKNOWN
     Route: 048
  2. NATELE [Concomitant]
     Indication: ANAEMIA PROPHYLAXIS
     Dosage: 1 TABLET, QD
     Route: 048
     Dates: start: 2013
  3. NEUTROFER (FOLIC ACID (+) HYDROXOCOBALAMIN ACETATE (+) IRON SORBITEX) [Concomitant]
     Indication: ANAEMIA PROPHYLAXIS
     Dosage: 1 TABLET, QD
     Route: 048
     Dates: start: 2013

REACTIONS (4)
  - Caesarean section [Unknown]
  - Hypersensitivity [Unknown]
  - Drug hypersensitivity [Unknown]
  - Maternal exposure before pregnancy [Unknown]
